FAERS Safety Report 8197918-3 (Version None)
Quarter: 2012Q1

REPORT INFORMATION
  Report Type: 
  Country: None (occurrence: None)
  Receive Date: 20120309
  Receipt Date: 20120307
  Transmission Date: 20120608
  Serious: No
  Sender: FDA-Public Use
  Company Number: US-PFIZER INC-2012061529

PATIENT
  Sex: Male
  Weight: 58.957 kg

DRUGS (1)
  1. IBUPROFEN (ADVIL) [Suspect]
     Dosage: 400 MG, 1X/DAY
     Route: 048
     Dates: start: 20120229, end: 20120229

REACTIONS (3)
  - THROAT IRRITATION [None]
  - CHEST PAIN [None]
  - ORAL DISCOMFORT [None]
